FAERS Safety Report 25827834 (Version 2)
Quarter: 2025Q3

REPORT INFORMATION
  Report Type: Report from Study
  Country: US (occurrence: US)
  Receive Date: 20250921
  Receipt Date: 20250929
  Transmission Date: 20251021
  Serious: Yes (Other)
  Sender: GILEAD
  Company Number: US-GILEAD-2025-0728777

PATIENT
  Age: 63 Year
  Sex: Male

DRUGS (5)
  1. AMBRISENTAN [Suspect]
     Active Substance: AMBRISENTAN
     Indication: Pulmonary hypertension
     Dosage: 10MG ORALLY DAILY
     Route: 048
     Dates: start: 20250710
  2. REMODULIN [Suspect]
     Active Substance: TREPROSTINIL
     Indication: Product used for unknown indication
     Route: 065
  3. ADEMPAS [Suspect]
     Active Substance: RIOCIGUAT
     Indication: Product used for unknown indication
     Route: 065
  4. SOTATERCEPT [Concomitant]
     Active Substance: SOTATERCEPT
  5. WINREVAIR [Concomitant]
     Active Substance: SOTATERCEPT-CSRK

REACTIONS (3)
  - Pericardial effusion [Unknown]
  - Catheterisation cardiac [Unknown]
  - Colonoscopy [Unknown]

NARRATIVE: CASE EVENT DATE: 20250827
